FAERS Safety Report 9422783 (Version 1)
Quarter: 2013Q3

REPORT INFORMATION
  Report Type: Spontaneous
  Country: US (occurrence: None)
  Receive Date: 20130724
  Receipt Date: 20130724
  Transmission Date: 20140515
  Serious: Yes (Hospitalization)
  Sender: FDA-Public Use
  Company Number: IMP_06750_2013

PATIENT
  Age: 71 Year
  Sex: Female

DRUGS (1)
  1. CARBIDOPA-LEVODOPA-B [Suspect]
     Indication: PRODUCT USED FOR UNKNOWN INDICATION

REACTIONS (6)
  - Neuroleptic malignant syndrome [None]
  - Treatment noncompliance [None]
  - Unresponsive to stimuli [None]
  - Blood pressure decreased [None]
  - Herpes simplex encephalitis [None]
  - Therapy cessation [None]
